FAERS Safety Report 9173565 (Version 1)
Quarter: 2013Q1

REPORT INFORMATION
  Report Type: Spontaneous
  Country: BR (occurrence: BR)
  Receive Date: 20130320
  Receipt Date: 20130320
  Transmission Date: 20140127
  Serious: Yes (Death, Hospitalization, Other)
  Sender: FDA-Public Use
  Company Number: BR-SANOFI-AVENTIS-2013SA016536

PATIENT
  Age: 73 Year
  Sex: Male
  Weight: 105 kg

DRUGS (14)
  1. CLEXANE [Suspect]
     Indication: PROPHYLAXIS
     Route: 058
     Dates: start: 20130130, end: 20130211
  2. IPRATROPIUM BROMIDE [Concomitant]
     Route: 055
  3. INSULIN HUMAN [Concomitant]
     Route: 058
  4. OMEPRAZOLE [Concomitant]
     Route: 042
  5. MEROPENEM [Concomitant]
     Route: 042
  6. VANCOMYCIN [Concomitant]
     Route: 042
  7. FUROSEMIDE [Concomitant]
     Route: 042
  8. FENTANYL [Concomitant]
     Route: 042
  9. SULFAMETHOXAZOLE/TRIMETHOPRIM [Concomitant]
     Route: 042
  10. DOPAMINE [Concomitant]
     Route: 042
  11. METAMIZOLE [Concomitant]
     Route: 042
  12. MIDAZOLAM [Concomitant]
     Route: 042
  13. LACTULOSE [Concomitant]
     Route: 048
  14. AMITRIPTYLINE [Concomitant]
     Route: 048

REACTIONS (3)
  - Renal failure [Fatal]
  - Pulmonary embolism [Fatal]
  - Drug ineffective [Unknown]
